FAERS Safety Report 4737336-0 (Version None)
Quarter: 2005Q3

REPORT INFORMATION
  Report Type: 
  Country: None (occurrence: None)
  Receive Date: 20050809
  Receipt Date: 20050722
  Transmission Date: 20060218
  Serious: No
  Sender: FDA-Public Use
  Company Number: PHBS2005NZ10703

PATIENT
  Age: 43 Year
  Sex: Male

DRUGS (2)
  1. LAMISIL [Suspect]
     Indication: MEDICATION ERROR
     Dosage: 1500 MG/DAY
     Route: 048
  2. FRISIUM [Concomitant]
     Dosage: 10 MG/DAY

REACTIONS (2)
  - MEDICATION ERROR [None]
  - NAUSEA [None]
